FAERS Safety Report 10192023 (Version 1)
Quarter: 2014Q2

REPORT INFORMATION
  Report Type: Spontaneous
  Country: FR (occurrence: FR)
  Receive Date: 20140523
  Receipt Date: 20140523
  Transmission Date: 20141212
  Serious: Yes (Death, Hospitalization)
  Sender: FDA-Public Use
  Company Number: FR-PFIZER INC-2014139926

PATIENT
  Age: 73 Year
  Sex: Female

DRUGS (3)
  1. NOVATREX [Suspect]
     Indication: RHEUMATOID ARTHRITIS
     Dosage: 6 DF, WEEKLY
     Route: 048
     Dates: end: 20140301
  2. SALAZOPYRINE [Suspect]
     Indication: RHEUMATOID ARTHRITIS
     Dosage: 1 DF IN THE MORNING AND AT NOON AND 2 DFS IN THE EVENING
     Route: 048
     Dates: end: 20140301
  3. ENBREL [Suspect]
     Indication: RHEUMATOID ARTHRITIS
     Dosage: UNK
     Dates: start: 2004

REACTIONS (2)
  - Hepatic cancer [Fatal]
  - Phlebitis [Unknown]
